FAERS Safety Report 15023826 (Version 2)
Quarter: 2018Q3

REPORT INFORMATION
  Report Type: Spontaneous
  Country: FI (occurrence: FI)
  Receive Date: 20180618
  Receipt Date: 20180818
  Transmission Date: 20181010
  Serious: Yes (Hospitalization, Other)
  Sender: FDA-Public Use
  Company Number: FI-ROCHE-2140795

PATIENT
  Age: 73 Year
  Sex: Female
  Weight: 60 kg

DRUGS (2)
  1. CORTISONE [Concomitant]
     Active Substance: CORTISONE\HYDROCORTISONE
     Route: 065
     Dates: start: 2012
  2. ROACTEMRA [Suspect]
     Active Substance: TOCILIZUMAB
     Indication: POLYMYALGIA RHEUMATICA
     Dosage: TOTAL MONTHLY DOSE 400MG?MOST RECENT TOCILIZUMAB 400MG INFUSIONS WERE RECEIVED ON 05/JAN/2018, 01/FE
     Route: 042
     Dates: start: 20170428

REACTIONS (6)
  - Off label use [Unknown]
  - Staphylococcal sepsis [Recovered/Resolved]
  - Femoral neck fracture [Unknown]
  - Fall [Unknown]
  - Intentional product use issue [Unknown]
  - Postoperative wound infection [Unknown]

NARRATIVE: CASE EVENT DATE: 20180413
